FAERS Safety Report 6596368-0 (Version None)
Quarter: 2010Q1

REPORT INFORMATION
  Report Type: 
  Country: None (occurrence: None)
  Receive Date: 20100223
  Receipt Date: 20100219
  Transmission Date: 20100710
  Serious: Yes (Hospitalization)
  Sender: FDA-Public Use
  Company Number: PHHO2010RO02329

PATIENT
  Sex: Male
  Weight: 105 kg

DRUGS (14)
  1. BLINDED ALISKIREN ALI+TAB+CF [Suspect]
     Indication: CARDIAC FAILURE
     Dosage: NO TREATMENT
  2. BLINDED ENALAPRIL COMP-ENA+ [Suspect]
     Indication: CARDIAC FAILURE
     Dosage: NO TREATMENT
  3. BLINDED NO TREATMENT RECEIVED NOMED [Suspect]
     Indication: CARDIAC FAILURE
     Dosage: NO TREATMENT
  4. ALISKIREN [Suspect]
     Indication: CARDIAC FAILURE
     Dosage: 150MG
     Route: 048
     Dates: start: 20100203
  5. COMPARATOR ENALAPRIL [Suspect]
     Indication: CARDIAC FAILURE
     Dosage: UNK
     Route: 048
  6. COMPARATOR ENALAPRIL [Suspect]
     Dosage: 20MG
     Route: 048
     Dates: start: 20100203
  7. DIGOXIN [Concomitant]
     Indication: CARDIAC FAILURE CONGESTIVE
  8. CARVEDILOL [Concomitant]
     Indication: CARDIAC FAILURE CONGESTIVE
  9. FUROSEMIDE [Concomitant]
     Indication: CARDIAC FAILURE CONGESTIVE
  10. SPIRONOLACTONE [Concomitant]
     Indication: CARDIAC FAILURE CONGESTIVE
  11. ASPIRIN [Concomitant]
     Indication: MYOCARDIAL INFARCTION
  12. ACENOCOUMAROL [Concomitant]
     Indication: CARDIAC FAILURE CONGESTIVE
  13. HUMULIN R [Concomitant]
     Indication: DIABETES MELLITUS
  14. INSULIN HUMAN [Concomitant]
     Indication: DIABETES MELLITUS

REACTIONS (9)
  - CANDIDIASIS [None]
  - COUGH [None]
  - DISEASE PROGRESSION [None]
  - FAECAL INCONTINENCE [None]
  - PRODUCTIVE COUGH [None]
  - STAPHYLOCOCCAL INFECTION [None]
  - SYNCOPE [None]
  - TRACHEOBRONCHITIS [None]
  - URINARY INCONTINENCE [None]
